FAERS Safety Report 9688858 (Version 4)
Quarter: 2014Q1

REPORT INFORMATION
  Report Type: Spontaneous
  Country: IT (occurrence: None)
  Receive Date: 20131112
  Receipt Date: 20140109
  Transmission Date: 20141002
  Serious: Yes (Other)
  Sender: FDA-Public Use
  Company Number: AUR-APL-2013-09437

PATIENT
  Age: 68 Year
  Sex: Male

DRUGS (2)
  1. RAMIPRIL [Suspect]
     Indication: HYPERTENSION
     Dosage: 2.5MG (2.5 MG, 1 IN 1 D), ORAL
     Route: 048
     Dates: start: 20121010, end: 20131010
  2. CARDURA (DOXAZOSIN MESILATE) [Suspect]
     Indication: HYPERTENSION
     Dosage: 4 MG (4MG, 1 IN 1 D), ORAL
     Route: 048
     Dates: start: 20121010, end: 20131010

REACTIONS (3)
  - Blood pressure increased [None]
  - Drug ineffective [None]
  - Hypertension [None]
